FAERS Safety Report 14979738 (Version 1)
Quarter: 2018Q2

REPORT INFORMATION
  Report Type: Spontaneous
  Country: GB (occurrence: GB)
  Receive Date: 20180606
  Receipt Date: 20180606
  Transmission Date: 20180711
  Serious: Yes (Other)
  Sender: FDA-Public Use
  Company Number: GB-009507513-1806GBR000333

PATIENT
  Age: 33 Year
  Sex: Female

DRUGS (2)
  1. MIRTAZAPINE. [Suspect]
     Active Substance: MIRTAZAPINE
     Dosage: 7.5 MG, UNK
     Route: 048
  2. MIRTAZAPINE. [Suspect]
     Active Substance: MIRTAZAPINE
     Indication: DEPRESSION
     Dosage: 15 MG, QD
     Route: 048
     Dates: start: 20170113

REACTIONS (4)
  - Hepatic enzyme increased [Recovered/Resolved]
  - Malaise [Unknown]
  - Abnormal weight gain [Unknown]
  - Increased appetite [Unknown]

NARRATIVE: CASE EVENT DATE: 20170113
